FAERS Safety Report 13315556 (Version 1)
Quarter: 2017Q1

REPORT INFORMATION
  Report Type: Report from Study
  Country: US (occurrence: US)
  Receive Date: 20170308
  Receipt Date: 20170308
  Transmission Date: 20170428
  Serious: No
  Sender: FDA-Public Use
  Company Number: US-AMGEN-USASL2016123183

PATIENT
  Age: 76 Year
  Sex: Female

DRUGS (3)
  1. RENVELA [Concomitant]
     Active Substance: SEVELAMER CARBONATE
     Indication: BLOOD CALCIUM ABNORMAL
  2. SENSIPAR [Suspect]
     Active Substance: CINACALCET HYDROCHLORIDE
     Indication: BLOOD PARATHYROID HORMONE ABNORMAL
     Dosage: 30 MG, QD
     Route: 048
     Dates: start: 2015
  3. SENSIPAR [Suspect]
     Active Substance: CINACALCET HYDROCHLORIDE
     Dosage: 60 MG, UNK
     Route: 048

REACTIONS (4)
  - Vomiting [Recovering/Resolving]
  - Laboratory test abnormal [Unknown]
  - Drug dose omission [Unknown]
  - Retching [Recovering/Resolving]

NARRATIVE: CASE EVENT DATE: 20160908
